FAERS Safety Report 4524480-6 (Version None)
Quarter: 2004Q4

REPORT INFORMATION
  Report Type: 
  Country: None (occurrence: None)
  Receive Date: 20041117
  Receipt Date: 20031007
  Transmission Date: 20050328
  Serious: Yes (Other)
  Sender: FDA-Public Use
  Company Number: US-JNJFOC-20031002735

PATIENT
  Age: 11 Year
  Sex: Female

DRUGS (1)
  1. LEVAQUIN [Suspect]
     Indication: SINUSITIS
     Dosage: 500 MG

REACTIONS (2)
  - ARTHRALGIA [None]
  - TENDON RUPTURE [None]
